FAERS Safety Report 22165129 (Version 4)
Quarter: 2023Q2

REPORT INFORMATION
  Report Type: Spontaneous
  Country: FR (occurrence: None)
  Receive Date: 20230403
  Receipt Date: 20230517
  Transmission Date: 20230721
  Serious: Yes (Death)
  Sender: FDA-Public Use
  Company Number: FR-ROCHE-3323140

PATIENT
  Age: 48 Year
  Sex: Male

DRUGS (1)
  1. TOCILIZUMAB [Suspect]
     Active Substance: TOCILIZUMAB
     Indication: Rheumatoid arthritis
     Dosage: ROACTEMRA STOPPED ON 23/02 DUE TO [ILLEGIBLE] BLOOD WORK ON 23/02, ONE INJECTION
     Route: 058
     Dates: start: 201901

REACTIONS (3)
  - Neoplasm [Fatal]
  - Colon cancer metastatic [Fatal]
  - Acute kidney injury [Fatal]

NARRATIVE: CASE EVENT DATE: 20230224
